FAERS Safety Report 8262400-1 (Version None)
Quarter: 2012Q2

REPORT INFORMATION
  Report Type: 
  Country: None (occurrence: None)
  Receive Date: 20120405
  Receipt Date: 20120326
  Transmission Date: 20120825
  Serious: Yes (Other)
  Sender: FDA-Public Use
  Company Number: GB-JNJFOC-20120314203

PATIENT
  Age: 74 Year
  Sex: Male

DRUGS (2)
  1. INFLIXIMAB, RECOMBINANT [Suspect]
     Indication: RHEUMATOID ARTHRITIS
     Route: 042
     Dates: start: 20040524, end: 20050321
  2. OTHER BIOLOGICS [Concomitant]
     Indication: RHEUMATOID ARTHRITIS
     Dates: start: 20090521

REACTIONS (1)
  - LENTIGO MALIGNA STAGE UNSPECIFIED [None]
